FAERS Safety Report 16600399 (Version 1)
Quarter: 2019Q3

REPORT INFORMATION
  Report Type: Spontaneous
  Country: IT (occurrence: IT)
  Receive Date: 20190720
  Receipt Date: 20190720
  Transmission Date: 20191004
  Serious: Yes (Hospitalization)
  Sender: FDA-Public Use
  Company Number: IT-ACCORD-139187

PATIENT
  Age: 88 Year
  Sex: Female

DRUGS (1)
  1. AMITRIPTYLINE [Suspect]
     Active Substance: AMITRIPTYLINE
     Route: 048
     Dates: start: 20190626, end: 20190626

REACTIONS (3)
  - Tachycardia [Recovering/Resolving]
  - Product administration error [Unknown]
  - Medication error [Unknown]

NARRATIVE: CASE EVENT DATE: 20190626
